FAERS Safety Report 13164265 (Version 1)
Quarter: 2017Q1

REPORT INFORMATION
  Report Type: Spontaneous
  Country: US (occurrence: US)
  Receive Date: 20170130
  Receipt Date: 20170130
  Transmission Date: 20170428
  Serious: Yes (Hospitalization)
  Sender: FDA-Public Use
  Company Number: US-009507513-1701USA010190

PATIENT
  Sex: Male
  Weight: 104.31 kg

DRUGS (4)
  1. LISINOPRIL (+) HYDROCHLOROTHIAZIDE [Concomitant]
     Active Substance: HYDROCHLOROTHIAZIDE\LISINOPRIL
  2. INSULIN [Concomitant]
     Active Substance: INSULIN NOS
  3. NEURONTIN [Concomitant]
     Active Substance: GABAPENTIN
  4. SINEMET [Suspect]
     Active Substance: CARBIDOPA\LEVODOPA
     Indication: TREMOR
     Dosage: 25-100 MG, UNK
     Route: 048
     Dates: start: 20160930, end: 20161015

REACTIONS (1)
  - Fall [Recovered/Resolved]

NARRATIVE: CASE EVENT DATE: 20161010
